FAERS Safety Report 9797662 (Version 1)
Quarter: 2014Q1

REPORT INFORMATION
  Report Type: Spontaneous
  Country: US (occurrence: US)
  Receive Date: 20140106
  Receipt Date: 20140106
  Transmission Date: 20141002
  Serious: Yes (Other)
  Sender: FDA-Public Use
  Company Number: US-PFIZER INC-2014002439

PATIENT
  Age: 68 Year
  Sex: Female

DRUGS (3)
  1. LYRICA [Suspect]
     Indication: PAIN IN EXTREMITY
     Dosage: 25 MG, 1X/DAY
     Dates: start: 20131228
  2. LYRICA [Suspect]
     Indication: PAIN
     Dosage: 50 MG, 1X/DAY
     Dates: start: 20131229
  3. LYRICA [Suspect]
     Dosage: UNK
     Dates: end: 20140102

REACTIONS (13)
  - Off label use [Unknown]
  - Intentional drug misuse [Unknown]
  - Angioedema [Unknown]
  - Cough [Unknown]
  - Choking sensation [Unknown]
  - Headache [Unknown]
  - Formication [Unknown]
  - Dyspnoea [Unknown]
  - Lip swelling [Unknown]
  - Swollen tongue [Unknown]
  - Insomnia [Unknown]
  - Drug ineffective [Unknown]
  - Drug ineffective for unapproved indication [Unknown]
